FAERS Safety Report 11274507 (Version 3)
Quarter: 2015Q3

REPORT INFORMATION
  Report Type: Spontaneous
  Country: US (occurrence: US)
  Receive Date: 20150715
  Receipt Date: 20150821
  Transmission Date: 20151125
  Serious: No
  Sender: FDA-Public Use
  Company Number: US-009507513-1506USA013868

PATIENT
  Sex: Male

DRUGS (3)
  1. RAPAFLO [Concomitant]
     Active Substance: SILODOSIN
     Dosage: UNK
  2. AMBIEN [Suspect]
     Active Substance: ZOLPIDEM TARTRATE
     Dosage: UNK
  3. BELSOMRA [Suspect]
     Active Substance: SUVOREXANT
     Indication: INSOMNIA
     Dosage: 10 MG, QD
     Route: 048
     Dates: start: 20150313, end: 20150320

REACTIONS (6)
  - Amnesia [Recovered/Resolved]
  - Confusional state [Recovered/Resolved]
  - Disorientation [Recovered/Resolved]
  - Somnolence [Recovering/Resolving]
  - Road traffic accident [Recovering/Resolving]
  - Concussion [Recovering/Resolving]

NARRATIVE: CASE EVENT DATE: 20150320
